FAERS Safety Report 20121217 (Version 98)
Quarter: 2025Q4

REPORT INFORMATION
  Report Type: Report from Study
  Country: US (occurrence: US)
  Receive Date: 20211127
  Receipt Date: 20251201
  Transmission Date: 20260118
  Serious: Yes (Hospitalization, Other)
  Sender: TAKEDA
  Company Number: US-PAREXEL-2021-KAM-US003639

PATIENT
  Age: 54 Year
  Sex: Female
  Weight: 62 kg

DRUGS (78)
  1. GLASSIA [Suspect]
     Active Substance: .ALPHA.1-PROTEINASE INHIBITOR HUMAN
     Indication: Alpha-1 antitrypsin deficiency
     Dosage: 60 MILLIGRAM/KILOGRAM, 1/WEEK
  2. GLASSIA [Suspect]
     Active Substance: .ALPHA.1-PROTEINASE INHIBITOR HUMAN
     Dosage: UNK UNK, 1/WEEK
  3. GLASSIA [Suspect]
     Active Substance: .ALPHA.1-PROTEINASE INHIBITOR HUMAN
     Dosage: 60 MILLIGRAM/KILOGRAM, 1/WEEK
  4. RIFAMPIN [Suspect]
     Active Substance: RIFAMPIN
     Indication: Product used for unknown indication
     Dosage: UNK
  5. VORICONAZOLE [Suspect]
     Active Substance: VORICONAZOLE
     Indication: Product used for unknown indication
     Dosage: UNK
  6. ITRACONAZOLE [Suspect]
     Active Substance: ITRACONAZOLE
     Indication: Product used for unknown indication
     Dosage: UNK
  7. ETHAMBUTOL HYDROCHLORIDE [Suspect]
     Active Substance: ETHAMBUTOL HYDROCHLORIDE
     Indication: Mycobacterium avium complex infection
     Dosage: UNK
  8. NUZYRA [Suspect]
     Active Substance: OMADACYCLINE
     Indication: Mycobacterium avium complex infection
     Dosage: UNK
  9. EPINEPHRINE [Concomitant]
     Active Substance: EPINEPHRINE
     Dosage: UNK
  10. IBUPROFEN [Concomitant]
     Active Substance: IBUPROFEN
     Dosage: UNK
  11. XOPENEX [Concomitant]
     Active Substance: LEVALBUTEROL HYDROCHLORIDE
     Dosage: UNK
  12. TUMS ULTRA [Concomitant]
     Active Substance: CALCIUM CARBONATE
     Dosage: UNK
  13. SUMATRIPTAN SUCCINATE [Concomitant]
     Active Substance: SUMATRIPTAN SUCCINATE
     Dosage: UNK
  14. CYMBALTA [Concomitant]
     Active Substance: DULOXETINE HYDROCHLORIDE
     Dosage: UNK
  15. TIZANIDINE HYDROCHLORIDE [Concomitant]
     Active Substance: TIZANIDINE HYDROCHLORIDE
     Dosage: UNK
  16. FIORICET [Concomitant]
     Active Substance: ACETAMINOPHEN\BUTALBITAL\CAFFEINE
     Dosage: UNK
  17. BACLOFEN [Concomitant]
     Active Substance: BACLOFEN
     Dosage: UNK
  18. POTASSIUM CHLORIDE [Concomitant]
     Active Substance: POTASSIUM CHLORIDE
     Dosage: UNK
  19. HEPARIN [Concomitant]
     Active Substance: HEPARIN SODIUM
     Dosage: UNK
  20. SODIUM CHLORIDE [Concomitant]
     Active Substance: SODIUM CHLORIDE
     Dosage: UNK
  21. CYANOCOBALAMIN [Concomitant]
     Active Substance: CYANOCOBALAMIN
     Dosage: UNK
  22. LORAZEPAM [Concomitant]
     Active Substance: LORAZEPAM
     Dosage: UNK
  23. LASIX [Concomitant]
     Active Substance: FUROSEMIDE
     Dosage: UNK
  24. ALBUTEROL SULFATE [Concomitant]
     Active Substance: ALBUTEROL SULFATE
     Dosage: UNK
  25. PROTONIX [Concomitant]
     Active Substance: PANTOPRAZOLE SODIUM
     Dosage: UNK
  26. PROMETHAZINE HYDROCHLORIDE [Concomitant]
     Active Substance: PROMETHAZINE HYDROCHLORIDE
     Dosage: UNK
  27. TRAMADOL HCL [Concomitant]
     Active Substance: TRAMADOL HYDROCHLORIDE
     Dosage: UNK
  28. VITAMIN D3 [Concomitant]
     Active Substance: CHOLECALCIFEROL
     Dosage: UNK
  29. SCOPOLAMINE [Concomitant]
     Active Substance: SCOPOLAMINE
     Dosage: UNK
  30. JANSSEN COVID-19 VACCINE [Concomitant]
     Active Substance: AD26.COV2.S
     Dosage: UNK
  31. Lmx [Concomitant]
     Dosage: UNK
  32. DIPHENHYDRAMINE HYDROCHLORIDE [Concomitant]
     Active Substance: DIPHENHYDRAMINE HYDROCHLORIDE
     Dosage: UNK
  33. CYPROHEPTADINE HYDROCHLORIDE [Concomitant]
     Active Substance: CYPROHEPTADINE HYDROCHLORIDE
     Dosage: UNK
  34. TRAZODONE HCL [Concomitant]
     Active Substance: TRAZODONE HYDROCHLORIDE
     Dosage: UNK
  35. AMLODIPINE BESYLATE [Concomitant]
     Active Substance: AMLODIPINE BESYLATE
     Dosage: UNK
  36. FERRIC POLYSACCHARIDE COMPLEX [Concomitant]
     Active Substance: FERRIC POLYSACCHARIDE COMPLEX
     Dosage: UNK
  37. HYDROXYZINE HYDROCHLORIDE [Concomitant]
     Active Substance: HYDROXYZINE HYDROCHLORIDE
     Dosage: UNK
  38. AZITHROMYCIN [Concomitant]
     Active Substance: AZITHROMYCIN
     Dosage: UNK
  39. TRIAMCINOLONE ACETONIDE [Concomitant]
     Active Substance: TRIAMCINOLONE ACETONIDE
     Dosage: UNK
  40. ZOFRAN [Concomitant]
     Active Substance: ONDANSETRON HYDROCHLORIDE
     Dosage: UNK
  41. PROPRANOLOL HYDROCHLORIDE [Concomitant]
     Active Substance: PROPRANOLOL HYDROCHLORIDE
     Dosage: UNK
  42. DOCUSATE SODIUM\SENNOSIDES A AND B [Concomitant]
     Active Substance: DOCUSATE SODIUM\SENNOSIDES A AND B
     Dosage: UNK
  43. Covid-19 vaccine [Concomitant]
     Dosage: UNK
  44. PREDNISONE [Concomitant]
     Active Substance: PREDNISONE
     Dosage: UNK
  45. FLUOXETINE [Concomitant]
     Active Substance: FLUOXETINE HYDROCHLORIDE
     Dosage: UNK
  46. PHENERGAN [Concomitant]
     Active Substance: PROMETHAZINE HYDROCHLORIDE
     Dosage: UNK
  47. TRULANCE [Concomitant]
     Active Substance: PLECANATIDE
     Dosage: UNK
  48. NINJACOF [Concomitant]
     Active Substance: CHLOPHEDIANOL HYDROCHLORIDE\PYRILAMINE MALEATE
     Dosage: UNK
  49. ULTRAM [Concomitant]
     Active Substance: TRAMADOL HYDROCHLORIDE
     Dosage: UNK
  50. Janssens tee [Concomitant]
     Dosage: UNK
  51. ACYCLOVIR [Concomitant]
     Active Substance: ACYCLOVIR
     Dosage: UNK
  52. FERROUS SULFATE [Concomitant]
     Active Substance: FERROUS SULFATE
     Dosage: UNK
  53. VITAMIN B6 [Concomitant]
     Active Substance: PYRIDOXINE HYDROCHLORIDE
     Dosage: UNK
  54. BUSPIRONE HCL [Concomitant]
     Active Substance: BUSPIRONE HYDROCHLORIDE
     Dosage: UNK
  55. PREGABALIN [Concomitant]
     Active Substance: PREGABALIN
     Dosage: UNK
  56. LEVALBUTEROL HYDROCHLORIDE [Concomitant]
     Active Substance: LEVALBUTEROL HYDROCHLORIDE
     Dosage: UNK
  57. TOPIRAMATE [Concomitant]
     Active Substance: TOPIRAMATE
     Dosage: UNK
  58. ALBUTEROL SULFATE [Concomitant]
     Active Substance: ALBUTEROL SULFATE
     Dosage: UNK
  59. ZEMAIRA [Concomitant]
     Active Substance: .ALPHA.1-PROTEINASE INHIBITOR HUMAN
     Dosage: UNK
  60. NYSTATIN [Concomitant]
     Active Substance: NYSTATIN
     Dosage: UNK
  61. MOXIFLOXACIN [Concomitant]
     Active Substance: MOXIFLOXACIN
     Dosage: UNK
  62. LEVOFLOXACIN [Concomitant]
     Active Substance: LEVOFLOXACIN
     Dosage: UNK
  63. FLUCONAZOLE [Concomitant]
     Active Substance: FLUCONAZOLE
     Dosage: UNK
  64. DIFICID [Concomitant]
     Active Substance: FIDAXOMICIN
     Dosage: UNK
  65. LURASIDONE [Concomitant]
     Active Substance: LURASIDONE
     Dosage: UNK
  66. LURASIDONE HYDROCHLORIDE [Concomitant]
     Active Substance: LURASIDONE HYDROCHLORIDE
     Dosage: UNK
  67. REXULTI [Concomitant]
     Active Substance: BREXPIPRAZOLE
     Dosage: UNK
  68. AMIKACIN SULFATE [Concomitant]
     Active Substance: AMIKACIN SULFATE
     Dosage: UNK
  69. SENNOSIDES [Concomitant]
     Active Substance: SENNOSIDES
     Dosage: UNK
  70. BUDESONIDE [Concomitant]
     Active Substance: BUDESONIDE
     Dosage: UNK
  71. DOXYCYCLINE [Concomitant]
     Active Substance: DOXYCYCLINE
     Dosage: UNK
  72. CODEINE PHOSPHATE\GUAIFENESIN [Concomitant]
     Active Substance: CODEINE PHOSPHATE\GUAIFENESIN
     Dosage: UNK
  73. Lyta [Concomitant]
     Dosage: UNK
  74. GUAIFENESIN [Concomitant]
     Active Substance: GUAIFENESIN
     Dosage: UNK
  75. ONDANSETRON HYDROCHLORIDE [Concomitant]
     Active Substance: ONDANSETRON HYDROCHLORIDE
     Dosage: UNK
  76. MAGNESIUM [Concomitant]
     Active Substance: MAGNESIUM
     Dosage: UNK
  77. ESTRADIOL [Concomitant]
     Active Substance: ESTRADIOL
     Dosage: UNK UNK, 1/WEEK
  78. PREMARIN [Concomitant]
     Active Substance: ESTROGENS, CONJUGATED
     Dosage: UNK

REACTIONS (67)
  - Mycobacterial infection [Not Recovered/Not Resolved]
  - Haemoptysis [Unknown]
  - COVID-19 [Unknown]
  - Arteriovenous malformation [Not Recovered/Not Resolved]
  - Cardiac failure congestive [Unknown]
  - Aspergillus infection [Unknown]
  - Respiratory tract infection [Not Recovered/Not Resolved]
  - Pyrexia [Unknown]
  - Lower respiratory tract infection [Not Recovered/Not Resolved]
  - Bronchitis [Unknown]
  - Pneumonia [Not Recovered/Not Resolved]
  - Scedosporium infection [Unknown]
  - Pneumonia bacterial [Not Recovered/Not Resolved]
  - Pneumonia fungal [Unknown]
  - Pseudomonas infection [Not Recovered/Not Resolved]
  - Pneumonia pseudomonal [Unknown]
  - Nephrolithiasis [Recovered/Resolved]
  - Bowen^s disease [Unknown]
  - Respiratory tract infection fungal [Not Recovered/Not Resolved]
  - Penicillium infection [Not Recovered/Not Resolved]
  - Bronchopulmonary aspergillosis [Not Recovered/Not Resolved]
  - Clostridium difficile infection [Not Recovered/Not Resolved]
  - Mycobacterium avium complex infection [Not Recovered/Not Resolved]
  - Diarrhoea [Unknown]
  - Rhinovirus infection [Unknown]
  - Fungal infection [Not Recovered/Not Resolved]
  - Urinary tract infection [Unknown]
  - Pain in jaw [Unknown]
  - Sputum culture positive [Unknown]
  - Pain in extremity [Unknown]
  - Body temperature increased [Unknown]
  - Obstruction [Unknown]
  - Pain [Unknown]
  - Fall [Unknown]
  - Infusion site rash [Unknown]
  - Infusion site erythema [Unknown]
  - Blister [Unknown]
  - Anxiety [Unknown]
  - Productive cough [Not Recovered/Not Resolved]
  - Contrast media reaction [Unknown]
  - Streptococcal infection [Unknown]
  - Gastrointestinal infection [Not Recovered/Not Resolved]
  - Influenza [Unknown]
  - Viral infection [Recovering/Resolving]
  - Infection [Not Recovered/Not Resolved]
  - Product dose omission issue [Unknown]
  - Illness [Unknown]
  - Dermatitis contact [Unknown]
  - Chronic respiratory disease [Unknown]
  - Dysphonia [Unknown]
  - Constipation [Not Recovered/Not Resolved]
  - Pleural effusion [Unknown]
  - Muscle spasms [Unknown]
  - Chills [Unknown]
  - Respiratory tract infection bacterial [Unknown]
  - Blood pressure increased [Unknown]
  - Oedema peripheral [Not Recovered/Not Resolved]
  - Chest pain [Unknown]
  - Pruritus [Unknown]
  - Vomiting [Unknown]
  - Rash [Unknown]
  - Back pain [Unknown]
  - Cough [Unknown]
  - Dyspnoea [Unknown]
  - Upper respiratory tract infection [Not Recovered/Not Resolved]
  - Nausea [Not Recovered/Not Resolved]
  - Malaise [Unknown]

NARRATIVE: CASE EVENT DATE: 20221109
